FAERS Safety Report 7444206-6 (Version None)
Quarter: 2011Q2

REPORT INFORMATION
  Report Type: 
  Country: None (occurrence: None)
  Receive Date: 20110419
  Receipt Date: 20110406
  Transmission Date: 20111010
  Serious: Yes (Other)
  Sender: FDA-Public Use
  Company Number: 2011MA003766

PATIENT
  Age: 38 Year
  Sex: Male

DRUGS (4)
  1. SERTRALINE HYDROCHLORIDE [Suspect]
     Indication: DEPRESSION
     Dosage: 100 MG; ;PO
     Route: 048
     Dates: start: 20110215, end: 20110228
  2. SERTRALINE [Concomitant]
  3. INSULIN [Concomitant]
  4. SERTRALINE HYDROCHLORIDE [Suspect]
     Indication: DEPRESSION
     Dosage: 100 MG; PO
     Route: 048
     Dates: start: 20110215, end: 20110228

REACTIONS (2)
  - LIVER FUNCTION TEST ABNORMAL [None]
  - JAUNDICE [None]
